FAERS Safety Report 7441994-X (Version None)
Quarter: 2011Q2

REPORT INFORMATION
  Report Type: 
  Country: None (occurrence: None)
  Receive Date: 20110428
  Receipt Date: 20100901
  Transmission Date: 20111010
  Serious: No
  Sender: FDA-Public Use
  Company Number: US-ASTRAZENECA-2010SE41299

PATIENT
  Age: 32 Year
  Sex: Female

DRUGS (3)
  1. ZOMIG [Suspect]
     Indication: HEADACHE
     Route: 048
     Dates: start: 20091001
  2. PROPRANOLOL [Concomitant]
     Indication: MIGRAINE
     Dosage: AS REQUIRED
  3. ZOMIG [Suspect]
     Indication: MIGRAINE
     Route: 048
     Dates: start: 20091001

REACTIONS (5)
  - SLUGGISHNESS [None]
  - HEADACHE [None]
  - BLOOD PRESSURE INCREASED [None]
  - DYSPNOEA [None]
  - CHEST DISCOMFORT [None]
